APPROVED DRUG PRODUCT: METOPROLOL TARTRATE AND HYDROCHLOROTHIAZIDE
Active Ingredient: HYDROCHLOROTHIAZIDE; METOPROLOL TARTRATE
Strength: 50MG;100MG
Dosage Form/Route: TABLET;ORAL
Application: A076792 | Product #003 | TE Code: AB
Applicant: MYLAN PHARMACEUTICALS
Approved: Aug 20, 2004 | RLD: No | RS: No | Type: RX